FAERS Safety Report 11202737 (Version 1)
Quarter: 2015Q2

REPORT INFORMATION
  Report Type: Spontaneous
  Country: CN (occurrence: CN)
  Receive Date: 20150619
  Receipt Date: 20150619
  Transmission Date: 20150821
  Serious: Yes (Other)
  Sender: FDA-Public Use
  Company Number: CN-ABBVIE-15P-035-1411961-00

PATIENT
  Age: 43 Year
  Sex: Male

DRUGS (1)
  1. VALPROATE SODIUM/VALPROIC ACID [Suspect]
     Active Substance: VALPROIC ACID
     Indication: EPILEPSY
     Dosage: EXTENDED RELEASE
     Route: 048
     Dates: start: 201206

REACTIONS (7)
  - Loss of consciousness [Recovered/Resolved]
  - Fall [Recovered/Resolved]
  - Seizure [Recovered/Resolved]
  - Diarrhoea [Not Recovered/Not Resolved]
  - Foaming at mouth [Recovered/Resolved]
  - Trismus [Recovered/Resolved]
  - Weight increased [Not Recovered/Not Resolved]
